FAERS Safety Report 12777495 (Version 1)
Quarter: 2016Q3

REPORT INFORMATION
  Report Type: Spontaneous
  Country: US (occurrence: US)
  Receive Date: 20160924
  Receipt Date: 20160924
  Transmission Date: 20161109
  Serious: No
  Sender: FDA-Public Use
  Company Number: US-TEVA-619948USA

PATIENT
  Age: 62 Year
  Sex: Male

DRUGS (1)
  1. CLONAZEPAM. [Suspect]
     Active Substance: CLONAZEPAM
     Indication: PRODUCT USED FOR UNKNOWN INDICATION
     Dates: start: 20151125

REACTIONS (4)
  - Nausea [Unknown]
  - Diarrhoea [Unknown]
  - Chest pain [Unknown]
  - Eructation [Unknown]

NARRATIVE: CASE EVENT DATE: 20151126
